FAERS Safety Report 7707107-1 (Version None)
Quarter: 2011Q3

REPORT INFORMATION
  Report Type: 
  Country: None (occurrence: None)
  Receive Date: 20110824
  Receipt Date: 20110818
  Transmission Date: 20111222
  Serious: Yes (Other)
  Sender: FDA-Public Use
  Company Number: US-PFIZER INC-2007036140

PATIENT
  Sex: Male

DRUGS (4)
  1. NEURONTIN [Suspect]
     Indication: PSYCHOMOTOR HYPERACTIVITY
  2. NEURONTIN [Suspect]
     Indication: AFFECTIVE DISORDER
  3. NEURONTIN [Suspect]
     Indication: ATTENTION DEFICIT/HYPERACTIVITY DISORDER
     Dosage: 250/5 ML
     Dates: start: 20040101
  4. NEURONTIN [Suspect]
     Indication: ANGER

REACTIONS (5)
  - DEPRESSION [None]
  - SUICIDAL IDEATION [None]
  - DRUG INEFFECTIVE FOR UNAPPROVED INDICATION [None]
  - AMNESIA [None]
  - THINKING ABNORMAL [None]
